FAERS Safety Report 6985269-1 (Version None)
Quarter: 2010Q3

REPORT INFORMATION
  Report Type: 
  Country: None (occurrence: None)
  Receive Date: 20100915
  Receipt Date: 20100907
  Transmission Date: 20110219
  Serious: Yes (Hospitalization)
  Sender: FDA-Public Use
  Company Number: US-BAYER-201038843GPV

PATIENT
  Age: 33 Year
  Sex: Male

DRUGS (1)
  1. NAPROXEN [Suspect]
     Indication: MIGRAINE

REACTIONS (6)
  - ACUTE MYOCARDIAL INFARCTION [None]
  - CHEST PAIN [None]
  - DIZZINESS [None]
  - ELECTROCARDIOGRAM ST SEGMENT DEPRESSION [None]
  - KOUNIS SYNDROME [None]
  - RASH MACULO-PAPULAR [None]
